FAERS Safety Report 25216709 (Version 1)
Quarter: 2025Q2

REPORT INFORMATION
  Report Type: Spontaneous
  Country: US (occurrence: US)
  Receive Date: 20250419
  Receipt Date: 20250419
  Transmission Date: 20250716
  Serious: No
  Sender: APOTEX
  Company Number: US-APOTEX-2025AP004825

PATIENT
  Age: 66 Year
  Sex: Female

DRUGS (2)
  1. GEMCITABINE [Suspect]
     Active Substance: GEMCITABINE
     Indication: Cutaneous T-cell lymphoma
     Route: 065
     Dates: start: 202210, end: 202301
  2. GEMCITABINE [Suspect]
     Active Substance: GEMCITABINE
     Route: 065
     Dates: start: 2023

REACTIONS (7)
  - Dehydration [Unknown]
  - Fatigue [Unknown]
  - Weight decreased [Unknown]
  - Adverse drug reaction [Unknown]
  - Drug intolerance [Unknown]
  - Pyrexia [Unknown]
  - Diarrhoea [Unknown]
